FAERS Safety Report 24608830 (Version 2)
Quarter: 2024Q4

REPORT INFORMATION
  Report Type: Other
  Country: US (occurrence: US)
  Receive Date: 20241112
  Receipt Date: 20241215
  Transmission Date: 20250114
  Serious: Yes (Hospitalization, Other)
  Sender: GLENMARK
  Company Number: US-GLENMARK PHARMACEUTICALS-2024GMK095254

PATIENT

DRUGS (7)
  1. POTASSIUM CHLORIDE EXTENDED RELEASE [Suspect]
     Active Substance: POTASSIUM CHLORIDE
     Indication: Product used for unknown indication
     Dosage: UNK
     Route: 065
     Dates: start: 20231107, end: 20240202
  2. SERTRALINE [Concomitant]
     Active Substance: SERTRALINE HYDROCHLORIDE
     Indication: Product used for unknown indication
     Dosage: 100 MILLIGRAM, OD
     Route: 065
  3. LISINOPRIL [Concomitant]
     Active Substance: LISINOPRIL
     Indication: Product used for unknown indication
     Dosage: 10 MILLIGRAM, OD
     Route: 065
  4. CHOLESTYRAMINE [Concomitant]
     Active Substance: CHOLESTYRAMINE
     Indication: Product used for unknown indication
     Dosage: 4 GRAM, BID (ONCE IN THE MORNING AND ONCE IN THE EVENING)
     Route: 065
  5. TAMSULOSIN [Concomitant]
     Active Substance: TAMSULOSIN
     Indication: Product used for unknown indication
     Dosage: 0.4 MILLIGRAM, OD
     Route: 065
  6. FINASTERIDE [Concomitant]
     Active Substance: FINASTERIDE
     Indication: Product used for unknown indication
     Dosage: 5 MILLIGRAM, OD
     Route: 065
  7. AMLODIPINE [Concomitant]
     Active Substance: AMLODIPINE BESYLATE
     Indication: Product used for unknown indication
     Dosage: 5 MILLIGRAM, OD
     Route: 065

REACTIONS (9)
  - Psychomotor skills impaired [Recovered/Resolved]
  - Hypophagia [Recovered/Resolved]
  - Loss of personal independence in daily activities [Recovered/Resolved]
  - Somnolence [Recovered/Resolved]
  - Cognitive disorder [Recovered/Resolved]
  - Dementia Alzheimer^s type [Recovered/Resolved]
  - Recalled product administered [Unknown]
  - Therapy interrupted [Unknown]
  - Recalled product [Unknown]

NARRATIVE: CASE EVENT DATE: 20231101
